FAERS Safety Report 10778194 (Version 1)
Quarter: 2015Q1

REPORT INFORMATION
  Report Type: Spontaneous
  Country: MY (occurrence: MY)
  Receive Date: 20150209
  Receipt Date: 20150209
  Transmission Date: 20150721
  Serious: Yes (Other)
  Sender: FDA-Public Use
  Company Number: PHHY2015MY013630

PATIENT
  Sex: Female

DRUGS (6)
  1. TRIAMCINOLONE [Suspect]
     Active Substance: TRIAMCINOLONE
     Indication: IRIDOCYCLITIS
     Dosage: 0.5 ML, UNK
     Route: 057
  2. TROPICAMIDE. [Concomitant]
     Active Substance: TROPICAMIDE
     Indication: IRIDOCYCLITIS
     Dosage: 0.5 %, Q12H
     Route: 065
  3. TIMOLOL [Concomitant]
     Active Substance: TIMOLOL
     Indication: IRIDOCYCLITIS
     Dosage: 0.5 %, Q12H
     Route: 065
  4. PREDNISOLONE. [Concomitant]
     Active Substance: PREDNISOLONE
     Indication: IRIDOCYCLITIS
     Dosage: 1 MG/KG, UNK
     Route: 065
  5. PRED FORTE [Concomitant]
     Active Substance: PREDNISOLONE ACETATE
     Indication: IRIDOCYCLITIS
     Route: 065
  6. TRUSOPT [Concomitant]
     Active Substance: DORZOLAMIDE HYDROCHLORIDE
     Indication: IRIDOCYCLITIS
     Route: 065

REACTIONS (4)
  - Conjunctival hyperaemia [Recovered/Resolved]
  - Scleral discolouration [Recovered/Resolved]
  - Conjunctival ulcer [Recovered/Resolved]
  - Conjunctival haemorrhage [Recovered/Resolved]
